FAERS Safety Report 7318020-6 (Version None)
Quarter: 2011Q1

REPORT INFORMATION
  Report Type: 
  Country: None (occurrence: None)
  Receive Date: 20110227
  Receipt Date: 20110222
  Transmission Date: 20110831
  Serious: Yes (Other)
  Sender: FDA-Public Use
  Company Number: FR-BRISTOL-MYERS SQUIBB COMPANY-15479652

PATIENT
  Age: 51 Year
  Sex: Female
  Weight: 96 kg

DRUGS (4)
  1. STILNOX [Concomitant]
     Indication: INSOMNIA
     Dosage: STILNOX 1 DF = 1TAB
     Route: 048
     Dates: start: 20100602
  2. ABILIFY [Suspect]
     Indication: SCHIZOPHRENIA
     Route: 048
     Dates: start: 20100602, end: 20100804
  3. HALDOL [Concomitant]
     Route: 030
     Dates: start: 19980101, end: 20100602
  4. ZYPREXA [Concomitant]
     Route: 048
     Dates: start: 20060307, end: 20100602

REACTIONS (4)
  - LIBIDO INCREASED [None]
  - INSOMNIA [None]
  - MENTAL DISORDER [None]
  - EUPHORIC MOOD [None]
